FAERS Safety Report 6056276-0 (Version None)
Quarter: 2009Q1

REPORT INFORMATION
  Report Type: 
  Country: None (occurrence: None)
  Receive Date: 20090129
  Receipt Date: 20090121
  Transmission Date: 20090719
  Serious: Yes (Life-Threatening, Hospitalization)
  Sender: FDA-Public Use
  Company Number: FR-WYE-G02977309

PATIENT
  Sex: Female

DRUGS (5)
  1. EFFEXOR [Suspect]
     Indication: DEPRESSION
     Dosage: UNKNOWN
     Route: 048
     Dates: start: 20080701, end: 20080903
  2. NOCTRAN 10 [Suspect]
     Dosage: UNKNOWN
     Dates: start: 20080701, end: 20080903
  3. STILNOX [Suspect]
     Dosage: UNKNOWN
     Dates: start: 20080701, end: 20080903
  4. RISPERDAL [Suspect]
     Dosage: UNKNOWN
     Route: 048
     Dates: start: 20080701, end: 20080903
  5. THERALENE [Suspect]
     Dosage: UNKNOWN
     Route: 048
     Dates: start: 20080701, end: 20080903

REACTIONS (5)
  - ASTHENIA [None]
  - BONE MARROW FAILURE [None]
  - DRUG TOXICITY [None]
  - PNEUMONIA PNEUMOCOCCAL [None]
  - SEPTIC SHOCK [None]
